FAERS Safety Report 8076603-2 (Version None)
Quarter: 2012Q1

REPORT INFORMATION
  Report Type: 
  Country: None (occurrence: None)
  Receive Date: 20120127
  Receipt Date: 20120116
  Transmission Date: 20120608
  Serious: Yes (Hospitalization)
  Sender: FDA-Public Use
  Company Number: DE-ELI_LILLY_AND_COMPANY-DE201105001706

PATIENT
  Sex: Male
  Weight: 83 kg

DRUGS (24)
  1. GEMCITABINE HYDROCHLORIDE [Suspect]
     Indication: NON-SMALL CELL LUNG CANCER
     Dosage: 2500 MG, UNK
     Dates: start: 20110210
  2. PREDNISOLONE [Concomitant]
     Indication: RASH
     Dosage: UNK
     Dates: start: 20110303, end: 20110403
  3. KALINOR [Concomitant]
     Dosage: UNK
     Dates: start: 20110511, end: 20110517
  4. POTASSIUM CHLORIDE [Concomitant]
     Indication: HYPOKALAEMIA
     Dosage: UNK
     Route: 042
     Dates: start: 20110427, end: 20110427
  5. CISPLATIN [Suspect]
     Indication: NON-SMALL CELL LUNG CANCER
     Dosage: 150 MG, UNK
     Dates: start: 20110210
  6. BISOPROLOL FUMARATE [Concomitant]
     Indication: HYPERTENSION
     Dosage: UNK
     Dates: end: 20110504
  7. SPIRIVA [Concomitant]
     Indication: CHRONIC OBSTRUCTIVE PULMONARY DISEASE
     Dosage: UNK
     Dates: end: 20110517
  8. TORSEMIDE [Concomitant]
     Indication: HYPERTENSION
     Dosage: UNK
     Dates: end: 20110504
  9. NATRIUMFLUORIDE [Concomitant]
     Indication: HYPONATRAEMIA
     Dosage: UNK
     Dates: start: 20110310, end: 20110314
  10. NECITUMUMAB (11F8) (LY3012211) [Suspect]
     Indication: NON-SMALL CELL LUNG CANCER
     Dosage: 800 MG, UNK
     Dates: start: 20110210
  11. AMLODIPINE BESYLATE [Concomitant]
     Indication: HYPERTENSION
     Dosage: UNK
     Dates: end: 20110403
  12. FOSTER                             /00500401/ [Concomitant]
     Indication: DYSPNOEA
     Dosage: UNK
     Dates: start: 20110201, end: 20110418
  13. ARIXTRA [Concomitant]
     Indication: THROMBOSIS PROPHYLAXIS
     Dosage: UNK
     Dates: end: 20110211
  14. PANTOPRAZOLE [Concomitant]
     Dosage: UNK
     Dates: start: 20110201, end: 20110517
  15. RAMIPRIL [Concomitant]
     Indication: HYPERTENSION
     Dosage: UNK
     Dates: start: 20110212, end: 20110504
  16. SYMBICORT [Concomitant]
     Indication: CHRONIC OBSTRUCTIVE PULMONARY DISEASE
     Dosage: UNK
     Dates: end: 20110517
  17. CALCIUM +D3 [Concomitant]
     Indication: OSTEOPOROSIS
     Dosage: UNK
     Dates: start: 20110303
  18. KALINOR [Concomitant]
     Indication: HYPOKALAEMIA
     Dosage: UNK
     Dates: start: 20110311, end: 20110328
  19. MAGNESIUM [Concomitant]
     Indication: HYPOMAGNESAEMIA
     Dosage: UNK
     Dates: start: 20110505, end: 20110517
  20. DELIX PLUS [Concomitant]
     Indication: HYPERTENSION
     Dosage: UNK
     Dates: end: 20110211
  21. ARIXTRA [Concomitant]
     Dosage: UNK
     Dates: start: 20110508, end: 20110517
  22. METOCLOPRAMIDE [Concomitant]
     Indication: NAUSEA
     Dosage: UNK
     Dates: start: 20110201, end: 20110426
  23. DEXPANTHENOL [Concomitant]
     Indication: RASH
     Dosage: UNK
     Dates: start: 20110301, end: 20110504
  24. TORSEMIDE [Concomitant]
     Dosage: UNK
     Dates: start: 20110515

REACTIONS (1)
  - SEPSIS [None]
